FAERS Safety Report 4873711-1 (Version None)
Quarter: 2006Q1

REPORT INFORMATION
  Report Type: 
  Country: None (occurrence: None)
  Receive Date: 20060104
  Receipt Date: 20060104
  Transmission Date: 20060701
  Serious: Yes (Life-Threatening, Hospitalization)
  Sender: FDA-Public Use
  Company Number: None

PATIENT
  Age: 32 Year
  Sex: Male
  Weight: 54.8852 kg

DRUGS (5)
  1. COCAINE [Suspect]
  2. BENZODIAZEPINES [Suspect]
  3. BARBITURATES [Concomitant]
  4. PCA [Concomitant]
  5. OPIATES [Concomitant]

REACTIONS (4)
  - DRUG ABUSER [None]
  - LOSS OF CONSCIOUSNESS [None]
  - MULTIPLE DRUG OVERDOSE [None]
  - TOXICOLOGIC TEST ABNORMAL [None]
